FAERS Safety Report 8552948-4 (Version None)
Quarter: 2012Q3

REPORT INFORMATION
  Report Type: 
  Country: None (occurrence: None)
  Receive Date: 20120724
  Receipt Date: 20120724
  Transmission Date: 20120928
  Serious: Yes (Other)
  Sender: FDA-Public Use
  Company Number: None

PATIENT
  Sex: Female
  Weight: 63.05 kg

DRUGS (4)
  1. ESCITALOPRAM [Suspect]
     Indication: DEPRESSION
     Dosage: ONCE TAB QD PO
     Route: 048
  2. COUMADIN [Concomitant]
  3. INDERAL [Concomitant]
  4. TESTORETIC [Concomitant]

REACTIONS (4)
  - DIZZINESS [None]
  - MALAISE [None]
  - HEADACHE [None]
  - HYPERHIDROSIS [None]
